FAERS Safety Report 25192928 (Version 1)
Quarter: 2025Q2

REPORT INFORMATION
  Report Type: Spontaneous
  Country: US (occurrence: US)
  Receive Date: 20250414
  Receipt Date: 20250414
  Transmission Date: 20250716
  Serious: Yes (Other)
  Sender: ABBVIE
  Company Number: US-ABBVIE-6219570

PATIENT

DRUGS (1)
  1. RINVOQ [Suspect]
     Active Substance: UPADACITINIB
     Indication: Product used for unknown indication
     Route: 048

REACTIONS (11)
  - Steroid dependence [Unknown]
  - Lower respiratory tract infection [Unknown]
  - Erythema [Unknown]
  - Dry skin [Unknown]
  - Skin exfoliation [Unknown]
  - Erythema [Unknown]
  - Temperature regulation disorder [Unknown]
  - Topical steroid withdrawal reaction [Unknown]
  - Crying [Unknown]
  - Oxygen saturation decreased [Unknown]
  - Feeling abnormal [Unknown]
